FAERS Safety Report 10149158 (Version 1)
Quarter: 2014Q2

REPORT INFORMATION
  Report Type: Spontaneous
  Country: US (occurrence: US)
  Receive Date: 20140502
  Receipt Date: 20140502
  Transmission Date: 20141212
  Serious: Yes (Hospitalization, Congenital Anomaly, Other)
  Sender: FDA-Public Use
  Company Number: US-JNJFOC-20140417438

PATIENT
  Sex: Male

DRUGS (2)
  1. TOPAMAX [Suspect]
     Indication: PRODUCT USED FOR UNKNOWN INDICATION
     Route: 064
  2. XANAX [Suspect]
     Indication: PRODUCT USED FOR UNKNOWN INDICATION
     Route: 064

REACTIONS (7)
  - Cardiac failure congestive [Unknown]
  - Foetal exposure during pregnancy [Unknown]
  - Ventricular septal defect [Unknown]
  - Atrial septal defect [Unknown]
  - Tricuspid valve incompetence [Unknown]
  - Pulmonary valve stenosis [Unknown]
  - Premature baby [Not Recovered/Not Resolved]
